FAERS Safety Report 7289350-1 (Version None)
Quarter: 2011Q1

REPORT INFORMATION
  Report Type: 
  Country: None (occurrence: None)
  Receive Date: 20110211
  Receipt Date: 20110204
  Transmission Date: 20110831
  Serious: Yes (Hospitalization, Other)
  Sender: FDA-Public Use
  Company Number: US-CEPHALON-US019282

PATIENT
  Sex: Male
  Weight: 82 kg

DRUGS (14)
  1. DILAUDID [Concomitant]
     Indication: NEURALGIA
     Route: 037
  2. ATENOLOL [Concomitant]
     Indication: CARDIAC DISORDER
     Route: 048
  3. ATENOLOL [Concomitant]
     Indication: HYPERTENSION
     Route: 048
  4. AVODART [Concomitant]
     Indication: PROSTATIC DISORDER
     Route: 048
  5. DEPO-TESTOSTERONE [Concomitant]
     Indication: BLOOD TESTOSTERONE DECREASED
     Route: 030
  6. CLONIDINE [Concomitant]
     Indication: NEURALGIA
     Route: 037
  7. FLOMAX [Concomitant]
     Indication: PROSTATIC DISORDER
     Route: 048
  8. ATENOLOL [Concomitant]
     Indication: MIGRAINE
  9. ZONEGRAN [Concomitant]
     Route: 048
     Dates: start: 20040101
  10. CYMBALTA [Concomitant]
     Route: 048
     Dates: start: 20061201
  11. ACTIQ [Suspect]
     Indication: NEURALGIA
     Dosage: PRN, UP TO 9600UG QD
     Route: 002
     Dates: start: 20040101, end: 20061101
  12. PRAVACHOL [Concomitant]
     Indication: HYPERCHOLESTEROLAEMIA
     Route: 048
  13. CONSTIPATION MEDICATION [Concomitant]
     Indication: CONSTIPATION
     Route: 048
     Dates: start: 20070101
  14. VALIUM [Concomitant]
     Route: 048

REACTIONS (9)
  - HYPOAESTHESIA [None]
  - HALLUCINATION [None]
  - LETHARGY [None]
  - THINKING ABNORMAL [None]
  - PARANOIA [None]
  - WITHDRAWAL SYNDROME [None]
  - APHASIA [None]
  - FALL [None]
  - FEELING HOT [None]
